FAERS Safety Report 10032919 (Version 1)
Quarter: 2014Q1

REPORT INFORMATION
  Report Type: Report from Study
  Country: US (occurrence: US)
  Receive Date: 20140324
  Receipt Date: 20140324
  Transmission Date: 20141002
  Serious: Yes (Death, Hospitalization, Other)
  Sender: FDA-Public Use
  Company Number: US-BAYER-2014-044415

PATIENT
  Age: 59 Year
  Sex: Female

DRUGS (2)
  1. SORAFENIB (RAF KINASE INHIBITOR) [Suspect]
     Indication: NON-SMALL CELL LUNG CANCER METASTATIC
     Dosage: 400 MG, QD
     Route: 048
  2. LENALIDOMIDE [Suspect]
     Indication: NON-SMALL CELL LUNG CANCER METASTATIC
     Dosage: 10 MG, QD
     Route: 048

REACTIONS (5)
  - Multi-organ failure [Fatal]
  - Deep vein thrombosis [None]
  - Septic shock [None]
  - Pathological fracture [None]
  - Non-small cell lung cancer metastatic [None]
